FAERS Safety Report 6637973-2 (Version None)
Quarter: 2010Q1

REPORT INFORMATION
  Report Type: 
  Country: None (occurrence: None)
  Receive Date: 20100317
  Receipt Date: 20100303
  Transmission Date: 20100710
  Serious: Yes (Hospitalization, Other)
  Sender: FDA-Public Use
  Company Number: PHHY2010BR12787

PATIENT
  Age: 57 Year
  Sex: Female

DRUGS (2)
  1. FORASEQ [Suspect]
     Indication: LUNG DISORDER
     Dosage: 1 CAPSULE OF EACH SUBSTANCE, TWICE A DAY
     Dates: start: 20040101
  2. FORASEQ [Suspect]
     Indication: CYSTIC FIBROSIS
     Dosage: 12/400 MCG, 1 CAPSULE OF EACH SUBSTANCE, TWICE A DAY

REACTIONS (9)
  - ABASIA [None]
  - BREATH ODOUR [None]
  - CANDIDIASIS [None]
  - CONFUSIONAL STATE [None]
  - DRUG DEPENDENCE [None]
  - DYSPNOEA [None]
  - OXYGEN SATURATION DECREASED [None]
  - PNEUMONIA [None]
  - TONGUE DISORDER [None]
